FAERS Safety Report 17594739 (Version 5)
Quarter: 2020Q2

REPORT INFORMATION
  Report Type: Spontaneous
  Country: DE (occurrence: DE)
  Receive Date: 20200327
  Receipt Date: 20200519
  Transmission Date: 20200713
  Serious: Yes (Death, Other)
  Sender: FDA-Public Use
  Company Number: DE-009507513-2003DEU010218

PATIENT
  Age: 58 Year
  Sex: Female
  Weight: 73 kg

DRUGS (7)
  1. OLAPARIB. [Suspect]
     Active Substance: OLAPARIB
     Indication: OVARIAN CANCER STAGE III
     Dosage: TWO 150 MG TABLETS IN THE MORNING, TWO 150 MG TABLETS IN THE EVENING
     Route: 048
     Dates: start: 201909, end: 201909
  2. CARBOPLATIN. [Concomitant]
     Active Substance: CARBOPLATIN
     Indication: OVARIAN CANCER STAGE III
     Dosage: AUC 5 6 CYCLES
     Dates: start: 201811, end: 201904
  3. POSACONAZOLE [Suspect]
     Active Substance: POSACONAZOLE
     Dosage: TWO 150 MG TABLETS IN THE MORNING, TWO 150 MG TABLETS IN THE EVENING
     Route: 048
     Dates: start: 201909, end: 202002
  4. CAELYX [Concomitant]
     Active Substance: DOXORUBICIN HYDROCHLORIDE
     Indication: OVARIAN CANCER
     Dosage: 30 MG/M2, 6 CYCLES
     Dates: start: 201811, end: 201904
  5. PREGABALIN. [Concomitant]
     Active Substance: PREGABALIN
     Dosage: 150 MILLIGRAM, 1-0-1-0
  6. CARBOPLATIN. [Concomitant]
     Active Substance: CARBOPLATIN
     Indication: OVARIAN CANCER
  7. CAELYX [Concomitant]
     Active Substance: DOXORUBICIN HYDROCHLORIDE
     Indication: OVARIAN CANCER

REACTIONS (5)
  - Diarrhoea [Unknown]
  - Pneumonia [Fatal]
  - Metastases to soft tissue [Fatal]
  - Constipation [Unknown]
  - Drug eruption [Unknown]

NARRATIVE: CASE EVENT DATE: 202002
